FAERS Safety Report 5812021-2 (Version None)
Quarter: 2008Q3

REPORT INFORMATION
  Report Type: 
  Country: None (occurrence: None)
  Receive Date: 20080716
  Receipt Date: 20080707
  Transmission Date: 20090109
  Serious: Yes (Hospitalization, Other)
  Sender: FDA-Public Use
  Company Number: PHNU2007DE04117

PATIENT
  Sex: Female

DRUGS (4)
  1. RASILEZ [Suspect]
     Indication: HYPERTENSION
     Dosage: 150 MG/D
     Route: 048
     Dates: start: 20071017, end: 20071022
  2. RASILEZ [Suspect]
     Dosage: 150 MG/D
     Route: 048
     Dates: start: 20071108, end: 20071114
  3. DELIX [Concomitant]
     Indication: HYPERTENSION
     Dosage: 1 DF, BID
  4. TOREM [Concomitant]
     Dosage: 1 DF, QD

REACTIONS (9)
  - BILIRUBIN URINE [None]
  - BLOOD ALKALINE PHOSPHATASE INCREASED [None]
  - BLOOD CREATININE INCREASED [None]
  - BLOOD POTASSIUM INCREASED [None]
  - BLOOD TRIGLYCERIDES INCREASED [None]
  - BLOOD UREA INCREASED [None]
  - PROTEIN URINE PRESENT [None]
  - URINARY CASTS [None]
  - WHITE BLOOD CELLS URINE POSITIVE [None]
